FAERS Safety Report 15112156 (Version 2)
Quarter: 2018Q3

REPORT INFORMATION
  Report Type: Report from Study
  Country: DE (occurrence: DE)
  Receive Date: 20180705
  Receipt Date: 20180706
  Transmission Date: 20181010
  Serious: Yes (Death)
  Sender: FDA-Public Use
  Company Number: DE-ASTRAZENECA-2018SE83173

PATIENT
  Age: 75 Year
  Sex: Female

DRUGS (4)
  1. HYDROCHLOROTHIAZIDE/LISINOPRIL [Concomitant]
     Active Substance: HYDROCHLOROTHIAZIDE\LISINOPRIL
     Route: 065
  2. OXYGEN. [Concomitant]
     Active Substance: OXYGEN
     Dosage: AS REQUIRED
     Route: 065
  3. MEDI4736 [Suspect]
     Active Substance: DURVALUMAB
     Indication: LUNG CANCER METASTATIC
     Dosage: 1500 MG
     Route: 042
     Dates: start: 20180108, end: 20180423
  4. VINORELBINE [Suspect]
     Active Substance: VINORELBINE\VINORELBINE TARTRATE
     Indication: LUNG CANCER METASTATIC
     Dosage: 30 MG/M2
     Route: 042
     Dates: start: 20180108, end: 20180205

REACTIONS (1)
  - Sudden cardiac death [Fatal]

NARRATIVE: CASE EVENT DATE: 20180518
